FAERS Safety Report 11239826 (Version 1)
Quarter: 2015Q3

REPORT INFORMATION
  Report Type: Spontaneous
  Country: US (occurrence: None)
  Receive Date: 20150701
  Receipt Date: 20150701
  Transmission Date: 20151125
  Serious: Yes (Other)
  Sender: FDA-Public Use
  Company Number: None

PATIENT
  Age: 39 Year
  Sex: Female
  Weight: 81.65 kg

DRUGS (8)
  1. IRON MULTIVITAMIN [Concomitant]
  2. FERAHEME [Suspect]
     Active Substance: FERUMOXYTOL NON-STOICHIOMETRIC MAGNETITE
     Indication: IRON DEFICIENCY ANAEMIA
     Dosage: 1 WEEK X2, INTO A VEIN
     Dates: start: 20150629, end: 20150629
  3. ASA [Concomitant]
     Active Substance: ASPIRIN
  4. SYNTHROID [Concomitant]
     Active Substance: LEVOTHYROXINE SODIUM
  5. PREVACID [Concomitant]
     Active Substance: LANSOPRAZOLE
  6. PLAQUNEL [Concomitant]
  7. CELLCEPT [Concomitant]
     Active Substance: MYCOPHENOLATE MOFETIL\MYCOPHENOLATE MOFETIL HYDROCHLORIDE
  8. COREG [Concomitant]
     Active Substance: CARVEDILOL

REACTIONS (7)
  - Infusion related reaction [None]
  - Chest discomfort [None]
  - Oxygen saturation decreased [None]
  - Dyspnoea [None]
  - Blood pressure increased [None]
  - Dizziness [None]
  - Heart rate increased [None]

NARRATIVE: CASE EVENT DATE: 20150630
